FAERS Safety Report 8573568-1 (Version None)
Quarter: 2012Q3

REPORT INFORMATION
  Report Type: 
  Country: None (occurrence: None)
  Receive Date: 20120806
  Receipt Date: 20120731
  Transmission Date: 20120928
  Serious: Yes (Other)
  Sender: FDA-Public Use
  Company Number: US-ROXANE LABORATORIES, INC.-2012-RO-01630RO

PATIENT
  Sex: Female

DRUGS (3)
  1. HYDROCORTISONE [Concomitant]
     Indication: DERMATITIS
     Route: 061
     Dates: start: 20120201
  2. FLUTICASONE FUROATE [Suspect]
     Indication: MULTIPLE ALLERGIES
     Route: 045
     Dates: start: 20120523, end: 20120601
  3. NYSTATIN [Concomitant]
     Indication: FUNGAL INFECTION
     Route: 061
     Dates: start: 20120427

REACTIONS (2)
  - DRUG ADMINISTERED TO PATIENT OF INAPPROPRIATE AGE [None]
  - EPISTAXIS [None]
